FAERS Safety Report 23555412 (Version 1)
Quarter: 2024Q1

REPORT INFORMATION
  Report Type: Spontaneous
  Country: ES (occurrence: ES)
  Receive Date: 20240222
  Receipt Date: 20240222
  Transmission Date: 20240410
  Serious: Yes (Other)
  Sender: FDA-Public Use
  Company Number: None

PATIENT
  Age: 65 Year
  Sex: Male

DRUGS (12)
  1. TRULICITY [Suspect]
     Active Substance: DULAGLUTIDE
     Indication: Diabetes mellitus
     Dosage: 1.5 MG, WEEKLY (1/W)
     Route: 058
     Dates: start: 20180523, end: 20190926
  2. OZEMPIC [Suspect]
     Active Substance: SEMAGLUTIDE
     Indication: Diabetes mellitus
     Dosage: 0.5 MG, WEEKLY (1/W)
     Route: 058
     Dates: start: 20190926, end: 20220923
  3. KETOCONAZOL CINFA [Concomitant]
     Indication: Dermatitis
     Dosage: UNK UNK, DAILY
     Route: 061
     Dates: start: 20180519
  4. BISOPROLOL FUMARATE [Concomitant]
     Active Substance: BISOPROLOL FUMARATE
     Indication: Angina pectoris
     Dosage: 1.25 MG
     Route: 048
     Dates: start: 20220331
  5. ATORVASTATIN CALCIUM\EZETIMIBE [Concomitant]
     Active Substance: ATORVASTATIN CALCIUM\EZETIMIBE
     Indication: Angina pectoris
     Dosage: 1 DOSAGE FORM, DAILY
     Route: 048
     Dates: start: 20220331
  6. ACETAMINOPHEN [Concomitant]
     Active Substance: ACETAMINOPHEN
     Indication: Arthralgia
     Dosage: 1 G
     Route: 048
     Dates: start: 20190116
  7. OMEPRAZOL PENSA [OMEPRAZOLE] [Concomitant]
     Indication: Product used for unknown indication
     Dosage: 20 MG, DAILY
     Route: 048
     Dates: start: 20170207
  8. ZALDIAR [Concomitant]
     Active Substance: ACETAMINOPHEN\TRAMADOL HYDROCHLORIDE
     Indication: Back pain
     Dosage: 1 DOSAGE FORM, TID
     Route: 048
     Dates: start: 20201102
  9. ASPIRIN [Concomitant]
     Active Substance: ASPIRIN
     Indication: Angina pectoris
     Dosage: 100 MG
     Route: 048
     Dates: start: 20170206
  10. CAFINITRINA [CAFFEINE CITRATE;GLYCERYL TRINIT [Concomitant]
     Indication: Angina pectoris
     Dosage: 1 MG, DAILY
     Route: 060
     Dates: start: 20170207
  11. PRISTIQ EXTENDED-RELEASE [Concomitant]
     Active Substance: DESVENLAFAXINE SUCCINATE
     Indication: Persistent depressive disorder
     Dosage: 50 MG
     Route: 048
     Dates: start: 20210410
  12. SYNJARDY [Concomitant]
     Active Substance: EMPAGLIFLOZIN\METFORMIN HYDROCHLORIDE
     Indication: Diabetes mellitus
     Dosage: 1 DOSAGE FORM, BID
     Route: 048
     Dates: start: 20180919

REACTIONS (1)
  - Cholelithiasis obstructive [Recovering/Resolving]

NARRATIVE: CASE EVENT DATE: 20220919
